FAERS Safety Report 22147767 (Version 1)
Quarter: 2023Q1

REPORT INFORMATION
  Report Type: Spontaneous
  Country: CN (occurrence: CN)
  Receive Date: 20230328
  Receipt Date: 20230328
  Transmission Date: 20230418
  Serious: Yes (Life-Threatening)
  Sender: FDA-Public Use
  Company Number: CN-BoehringerIngelheim-2023-BI-227120

PATIENT
  Age: 89 Year
  Sex: Female
  Weight: 60 kg

DRUGS (1)
  1. ALTEPLASE [Suspect]
     Active Substance: ALTEPLASE
     Indication: Cerebral infarction
     Route: 042
     Dates: start: 20230305, end: 20230305

REACTIONS (9)
  - Lip swelling [Recovered/Resolved]
  - Dyspnoea [Recovered/Resolved]
  - Rash [Recovered/Resolved]
  - Tongue oedema [Recovered/Resolved]
  - Tachypnoea [Recovered/Resolved]
  - Pruritus [Recovered/Resolved]
  - Pharyngeal swelling [Recovered/Resolved]
  - Pharyngeal paraesthesia [Recovered/Resolved]
  - Off label use [Unknown]

NARRATIVE: CASE EVENT DATE: 20230305
